FAERS Safety Report 5865641-3 (Version None)
Quarter: 2008Q3

REPORT INFORMATION
  Report Type: 
  Country: None (occurrence: None)
  Receive Date: 20080829
  Receipt Date: 20080822
  Transmission Date: 20090109
  Serious: Yes (Hospitalization, Other)
  Sender: FDA-Public Use
  Company Number: US-PURDUE-USA_2008_0032349

PATIENT
  Age: 64 Year
  Sex: Female

DRUGS (6)
  1. OXYCONTIN [Suspect]
     Indication: BACK DISORDER
     Dosage: 80 MG, SEE TEXT
     Route: 048
  2. ALCOHOL [Suspect]
     Indication: ALCOHOL ABUSE
     Route: 048
  3. LORTAB [Suspect]
     Indication: DRUG USE FOR UNKNOWN INDICATION
     Dosage: 7.5 MG, TID
     Route: 048
  4. SEROQUEL [Concomitant]
     Indication: DRUG USE FOR UNKNOWN INDICATION
     Dosage: 175 MG, DAILY
     Route: 048
  5. PERIACTIN [Concomitant]
     Indication: DRUG USE FOR UNKNOWN INDICATION
     Dosage: UNK, TID
     Route: 048
  6. PAXIL [Concomitant]
     Indication: DRUG USE FOR UNKNOWN INDICATION
     Dosage: 40 MG, DAILY
     Route: 048

REACTIONS (11)
  - ALCOHOL WITHDRAWAL SYNDROME [None]
  - ALCOHOLISM [None]
  - ANHEDONIA [None]
  - ANXIETY [None]
  - DRUG DEPENDENCE [None]
  - GENERAL PHYSICAL HEALTH DETERIORATION [None]
  - HEPATOTOXICITY [None]
  - MOOD SWINGS [None]
  - PAIN [None]
  - PERSONALITY CHANGE [None]
  - SUBSTANCE ABUSE [None]
